FAERS Safety Report 18676645 (Version 1)
Quarter: 2020Q4

REPORT INFORMATION
  Report Type: Spontaneous
  Country: IN (occurrence: IN)
  Receive Date: 20201229
  Receipt Date: 20201229
  Transmission Date: 20210114
  Serious: Yes (Death)
  Sender: FDA-Public Use
  Company Number: IN-PFIZER INC-2020515305

PATIENT
  Age: 56 Year

DRUGS (1)
  1. DACOPLICE [Suspect]
     Active Substance: DACOMITINIB
     Indication: LUNG CANCER METASTATIC
     Dosage: 45 MG, 1X/DAY
     Route: 048
     Dates: start: 20200826, end: 20201224

REACTIONS (1)
  - Death [Fatal]
